FAERS Safety Report 9686629 (Version 3)
Quarter: 2014Q1

REPORT INFORMATION
  Report Type: Report from Study
  Country: JP (occurrence: JP)
  Receive Date: 20131113
  Receipt Date: 20140303
  Transmission Date: 20141002
  Serious: Yes (Death)
  Sender: FDA-Public Use
  Company Number: JP-GLAXOSMITHKLINE-B0942157A

PATIENT
  Age: 75 Year
  Sex: Male
  Weight: 56 kg

DRUGS (6)
  1. REVOLADE [Suspect]
     Indication: IMMUNE THROMBOCYTOPENIC PURPURA
     Route: 048
     Dates: start: 201108, end: 20131018
  2. CEPHARANTHINE [Concomitant]
     Indication: IMMUNE THROMBOCYTOPENIC PURPURA
     Route: 048
     Dates: end: 20131018
  3. MIYA BM [Concomitant]
     Route: 048
     Dates: end: 20131018
  4. CODEINE PHOSPHATE [Concomitant]
     Route: 048
     Dates: end: 20131018
  5. LOPEMIN [Concomitant]
     Route: 048
     Dates: end: 20131018
  6. BIOFERMIN R [Concomitant]
     Route: 048
     Dates: end: 20131018

REACTIONS (1)
  - Sepsis [Fatal]
